FAERS Safety Report 24241110 (Version 1)
Quarter: 2024Q3

REPORT INFORMATION
  Report Type: Spontaneous
  Country: CA (occurrence: CA)
  Receive Date: 20240823
  Receipt Date: 20240823
  Transmission Date: 20241017
  Serious: Yes (Death, Hospitalization)
  Sender: ROCHE
  Company Number: CA-ROCHE-10000061566

PATIENT
  Age: 73 Year
  Sex: Female
  Weight: 93 kg

DRUGS (10)
  1. ROZLYTREK [Suspect]
     Active Substance: ENTRECTINIB
     Indication: Adenoma benign
     Route: 048
  2. ALENDRONATE [Concomitant]
     Active Substance: ALENDRONATE SODIUM
  3. ASPIRIN [Concomitant]
     Active Substance: ASPIRIN
  4. CALCIUM\VITAMIN D [Concomitant]
     Active Substance: CALCIUM\VITAMIN D
  5. CLOBETASOL PROPIONATE [Concomitant]
     Active Substance: CLOBETASOL PROPIONATE
  6. FERROUS SULFATE [Concomitant]
     Active Substance: FERROUS SULFATE
  7. GLICLAZIDE [Concomitant]
     Active Substance: GLICLAZIDE
  8. MAGNESIUM OXIDE [Concomitant]
     Active Substance: MAGNESIUM OXIDE
  9. PANTOPRAZOLE [Concomitant]
     Active Substance: PANTOPRAZOLE
  10. PURIFIED WATER [Concomitant]
     Active Substance: WATER

REACTIONS (12)
  - Abdominal abscess [Fatal]
  - Abscess [Fatal]
  - Candida test positive [Fatal]
  - Diarrhoea [Fatal]
  - Enterococcal infection [Fatal]
  - Fistula [Fatal]
  - General physical health deterioration [Fatal]
  - Hyperthermia [Fatal]
  - Intestinal perforation [Fatal]
  - Nausea [Fatal]
  - Palliative care [Fatal]
  - Vomiting [Fatal]
